FAERS Safety Report 5127392-2 (Version None)
Quarter: 2006Q4

REPORT INFORMATION
  Report Type: 
  Country: None (occurrence: None)
  Receive Date: 20061013
  Receipt Date: 20061013
  Transmission Date: 20070319
  Serious: Yes (Hospitalization)
  Sender: FDA-Public Use
  Company Number: None

PATIENT
  Sex: Male
  Weight: 96.8 kg

DRUGS (1)
  1. BEVACIZUMAB   100 MG   GENENTECH [Suspect]
     Indication: RECTAL CANCER METASTATIC
     Dosage: 5MG/KG Q 2 WEEKS IV DRIP
     Route: 041
     Dates: start: 20060622, end: 20060928

REACTIONS (2)
  - DEEP VEIN THROMBOSIS [None]
  - PULMONARY EMBOLISM [None]
